FAERS Safety Report 7895029-5 (Version None)
Quarter: 2011Q4

REPORT INFORMATION
  Report Type: 
  Country: None (occurrence: None)
  Receive Date: 20111106
  Receipt Date: 20110822
  Transmission Date: 20120403
  Serious: No
  Sender: FDA-Public Use
  Company Number: US-AMGEN-USASP2011042810

PATIENT
  Sex: Male

DRUGS (7)
  1. SULFADIAZINE [Concomitant]
     Dosage: 500 MG, UNK
  2. TRIAMTERENE AND HYDROCHLOROTHIAZIDE [Concomitant]
     Dosage: UNK
  3. DORZOLAMID/TIMOLOL SOL 2-0.5%OP [Concomitant]
  4. NAPROSYN [Concomitant]
     Dosage: 500 MG, UNK
  5. PREDNISONE [Concomitant]
     Dosage: 10 MG, UNK
  6. ENBREL [Suspect]
     Indication: PRODUCT USED FOR UNKNOWN INDICATION
     Dosage: 50 MG, QWK
     Route: 058
  7. CIPROFLOXACIN [Concomitant]
     Indication: HAEMORRHAGE URINARY TRACT
     Dosage: 250 MG, UNK

REACTIONS (1)
  - BLOOD URINE PRESENT [None]
